FAERS Safety Report 4967766-3 (Version None)
Quarter: 2006Q2

REPORT INFORMATION
  Report Type: 
  Country: None (occurrence: None)
  Receive Date: 20060410
  Receipt Date: 20051031
  Transmission Date: 20061013
  Serious: Yes (Hospitalization)
  Sender: FDA-Public Use
  Company Number: US-MERCK-0603USA00624

PATIENT
  Age: 34 Year
  Sex: Female
  Weight: 83 kg

DRUGS (14)
  1. VIOXX [Suspect]
     Indication: ARTHRITIS
     Route: 048
     Dates: start: 20020207, end: 20020501
  2. VIOXX [Suspect]
     Route: 048
     Dates: start: 20020207, end: 20020501
  3. HYDROCHLOROTHIAZIDE [Concomitant]
     Indication: HYPERTENSION
     Route: 048
     Dates: start: 20000101
  4. HYDROCHLOROTHIAZIDE [Concomitant]
     Indication: OEDEMA
     Route: 048
     Dates: start: 20000101
  5. PROPOXYPHENE NAPSYLATE [Concomitant]
     Indication: PAIN
     Route: 048
     Dates: start: 20010101, end: 20040101
  6. ALPRAZOLAM [Concomitant]
     Indication: ANXIETY
     Route: 065
  7. FLONASE [Concomitant]
     Indication: HYPERSENSITIVITY
     Route: 055
  8. BUTALBITAL [Concomitant]
     Indication: PAIN
     Route: 065
  9. ZYRTEC [Concomitant]
     Indication: ABDOMINAL PAIN UPPER
     Route: 048
  10. REMERON [Concomitant]
     Indication: DEPRESSION
     Route: 048
  11. SYNTHROID [Concomitant]
     Indication: THYROID DISORDER
     Route: 048
     Dates: start: 20000601
  12. ADVAIR DISKUS 100/50 [Concomitant]
     Indication: ASTHMA
     Route: 055
  13. PAXIL [Concomitant]
     Indication: PANIC DISORDER
     Route: 048
  14. FLEXERIL [Concomitant]
     Indication: MYALGIA
     Route: 048
     Dates: start: 19950101, end: 20040101

REACTIONS (3)
  - CEREBROVASCULAR ACCIDENT [None]
  - THYROID DISORDER [None]
  - THYROIDECTOMY [None]
